FAERS Safety Report 13244147 (Version 1)
Quarter: 2017Q1

REPORT INFORMATION
  Report Type: Spontaneous
  Country: US (occurrence: US)
  Receive Date: 20170217
  Receipt Date: 20170217
  Transmission Date: 20170428
  Serious: No
  Sender: FDA-Public Use
  Company Number: US-UNICHEM LABORATORIES LIMITED-UCM201612-000307

PATIENT
  Sex: Female

DRUGS (4)
  1. LITHUM [Concomitant]
  2. AMLODIPINE [Suspect]
     Active Substance: AMLODIPINE BESYLATE
     Indication: BLOOD PRESSURE MEASUREMENT
     Dates: start: 201306
  3. LISINOPRIL. [Concomitant]
     Active Substance: LISINOPRIL
  4. PROCARDIA [Concomitant]
     Active Substance: NIFEDIPINE

REACTIONS (5)
  - Cardiac murmur [Recovering/Resolving]
  - Palpitations [Recovering/Resolving]
  - Treatment noncompliance [Unknown]
  - Joint swelling [Recovering/Resolving]
  - Drug ineffective [Unknown]
